FAERS Safety Report 20691244 (Version 1)
Quarter: 2022Q2

REPORT INFORMATION
  Report Type: Spontaneous
  Country: RU (occurrence: None)
  Receive Date: 20220408
  Receipt Date: 20220408
  Transmission Date: 20220721
  Serious: Yes (Other)
  Sender: FDA-Public Use
  Company Number: RU-Fresenius Kabi-FK202204187

PATIENT
  Sex: Female

DRUGS (2)
  1. CISPLATIN [Suspect]
     Active Substance: CISPLATIN
     Indication: Cervix carcinoma stage II
     Route: 041
  2. CISPLATIN [Suspect]
     Active Substance: CISPLATIN
     Route: 041

REACTIONS (1)
  - Cystitis ulcerative [Unknown]
